FAERS Safety Report 11882941 (Version 4)
Quarter: 2016Q1

REPORT INFORMATION
  Report Type: Spontaneous
  Country: DE (occurrence: DE)
  Receive Date: 20151231
  Receipt Date: 20160203
  Transmission Date: 20160526
  Serious: Yes (Life-Threatening, Hospitalization, Disabling, Other)
  Sender: FDA-Public Use
  Company Number: DE-JNJFOC-20151223234

PATIENT
  Age: 24 Year
  Sex: Female
  Weight: 65 kg

DRUGS (5)
  1. XARELTO [Suspect]
     Active Substance: RIVAROXABAN
     Indication: ANTICOAGULANT THERAPY
     Route: 048
     Dates: start: 201309, end: 2013
  2. AMOXICILLIN. [Concomitant]
     Active Substance: AMOXICILLIN
     Route: 065
     Dates: start: 20140211
  3. XARELTO [Suspect]
     Active Substance: RIVAROXABAN
     Indication: ANTICOAGULANT THERAPY
     Route: 048
     Dates: start: 2013
  4. XARELTO [Suspect]
     Active Substance: RIVAROXABAN
     Indication: ANTICOAGULANT THERAPY
     Route: 048
     Dates: start: 201401, end: 201402
  5. DROSPIRENONE W/ETHINYLESTRADIOL [Suspect]
     Active Substance: DROSPIRENONE\ETHINYL ESTRADIOL
     Indication: MENORRHAGIA
     Route: 050
     Dates: start: 2012, end: 2013

REACTIONS (34)
  - Mental disorder [Unknown]
  - Vena cava thrombosis [Recovered/Resolved]
  - Groin pain [Unknown]
  - Pelvic venous thrombosis [Unknown]
  - Chest pain [Unknown]
  - Epistaxis [Unknown]
  - Pain in extremity [Unknown]
  - Malaise [Unknown]
  - Oropharyngeal pain [Unknown]
  - Hypoaesthesia [Unknown]
  - Post thrombotic syndrome [Unknown]
  - Off label use [Unknown]
  - Dyspnoea [Unknown]
  - Loss of consciousness [Unknown]
  - Nausea [Unknown]
  - Fear of death [Unknown]
  - Depression [Unknown]
  - Retinal haemorrhage [Unknown]
  - Dizziness [Unknown]
  - Vena cava thrombosis [Unknown]
  - Gait disturbance [Unknown]
  - Headache [Unknown]
  - Syncope [Recovered/Resolved]
  - Pain in extremity [Unknown]
  - Deep vein thrombosis [Unknown]
  - Abdominal pain [Unknown]
  - General physical health deterioration [Unknown]
  - Vision blurred [Unknown]
  - Paraesthesia [Unknown]
  - Pelvic venous thrombosis [Unknown]
  - Brain contusion [Unknown]
  - Vena cava injury [Unknown]
  - Dysphagia [Unknown]
  - International normalised ratio increased [Unknown]

NARRATIVE: CASE EVENT DATE: 20130701
